FAERS Safety Report 13414737 (Version 1)
Quarter: 2017Q2

REPORT INFORMATION
  Report Type: Spontaneous
  Country: US (occurrence: US)
  Receive Date: 20170407
  Receipt Date: 20170407
  Transmission Date: 20170830
  Serious: Yes (Life-Threatening, Hospitalization, Other)
  Sender: FDA-Public Use
  Company Number: US-GILEAD-2017-0266403

PATIENT
  Age: 70 Year
  Sex: Female

DRUGS (2)
  1. ZYDELIG [Suspect]
     Active Substance: IDELALISIB
     Indication: PRODUCT USED FOR UNKNOWN INDICATION
     Dosage: UNK, (DURATION 12 MONTHS)
     Route: 065
     Dates: start: 20150325, end: 20160407
  2. RITUXIMAB [Suspect]
     Active Substance: RITUXIMAB
     Indication: PRODUCT USED FOR UNKNOWN INDICATION
     Dosage: UNK, (DURATION 2 MONTHS)
     Route: 065
     Dates: start: 20160428, end: 20160708

REACTIONS (2)
  - Progressive multifocal leukoencephalopathy [Unknown]
  - Biopsy brain abnormal [Unknown]
